FAERS Safety Report 4667299-8 (Version None)
Quarter: 2005Q2

REPORT INFORMATION
  Report Type: 
  Country: None (occurrence: None)
  Receive Date: 20050519
  Receipt Date: 20050519
  Transmission Date: 20051028
  Serious: Yes (Hospitalization)
  Sender: FDA-Public Use
  Company Number: None

PATIENT
  Age: 57 Year

DRUGS (1)
  1. NAFCILLIN SODIUM [Suspect]
     Indication: BACTERAEMIA
     Dosage: 1 G IV ABTT
     Route: 042

REACTIONS (4)
  - DRUG ERUPTION [None]
  - PYREXIA [None]
  - RASH MACULO-PAPULAR [None]
  - RENAL FAILURE ACUTE [None]
